FAERS Safety Report 19053968 (Version 2)
Quarter: 2021Q2

REPORT INFORMATION
  Report Type: Report from Study
  Country: CA (occurrence: CA)
  Receive Date: 20210325
  Receipt Date: 20210506
  Transmission Date: 20210717
  Serious: Yes (Hospitalization)
  Sender: FDA-Public Use
  Company Number: CA-JNJFOC-20210340134

PATIENT
  Age: 56 Year
  Sex: Male

DRUGS (1)
  1. REMICADE [Suspect]
     Active Substance: INFLIXIMAB
     Indication: COLITIS ULCERATIVE
     Dosage: ON 30?APR?2021, PATIENT RECEIVED THE 2ND INFUSION OF INFLIXIMAB 300 MG
     Route: 042
     Dates: start: 20210319

REACTIONS (3)
  - Abdominal pain upper [Recovered/Resolved]
  - Infusion related reaction [Unknown]
  - Visual impairment [Unknown]

NARRATIVE: CASE EVENT DATE: 20210319
